FAERS Safety Report 21272255 (Version 1)
Quarter: 2022Q3

REPORT INFORMATION
  Report Type: Spontaneous
  Country: US (occurrence: US)
  Receive Date: 20220830
  Receipt Date: 20220830
  Transmission Date: 20221027
  Serious: No
  Sender: FDA-Public Use
  Company Number: US-BRAINTREE LABORATORIES, INC.-2022BTE00612

PATIENT
  Age: 67 Year
  Sex: Female

DRUGS (18)
  1. SUTAB [Suspect]
     Active Substance: MAGNESIUM SULFATE\POTASSIUM CHLORIDE\SODIUM SULFATE
     Indication: Colonoscopy
     Dosage: 2 X 12 TABLETS, 1X
     Route: 048
     Dates: start: 20220713, end: 20220714
  2. TRAMADOL [Suspect]
     Active Substance: TRAMADOL
     Indication: Fibromyalgia
     Dosage: 50 MG, 2X/DAY (7:00 AM, 7:00 PM)
  3. TYLENOL [Suspect]
     Active Substance: ACETAMINOPHEN
     Indication: Fibromyalgia
     Dosage: 650 MG, 2X/DAY (7:00 AM, 7:00 PM)
  4. METFORMIN [Concomitant]
     Active Substance: METFORMIN HYDROCHLORIDE
     Dosage: 1000 MG, 1X/DAY (MORNING)
  5. LANTUS [Concomitant]
     Active Substance: INSULIN GLARGINE
     Dosage: 17 IU, 12 HOURS APART (MORNING AND EVENING)
     Dates: end: 20220712
  6. ELIQUIS [Concomitant]
     Active Substance: APIXABAN
     Dosage: 5 MG, 2X/DAY (MORNING AND NIGHT)
     Dates: end: 20220713
  7. CARVEDILOL [Concomitant]
     Active Substance: CARVEDILOL
     Dosage: 12.5 MG, 2X/DAY (MORNING AND NIGHT)
     Dates: end: 20220713
  8. LISINOPRIL [Concomitant]
     Active Substance: LISINOPRIL
     Dosage: 10 MG, 1X/DAY (AFTER OR DURING LUNCH)
  9. DULOXETINE [Concomitant]
     Active Substance: DULOXETINE
     Dosage: 60 MG, 1X/DAY (AFTER OR DURING LUNCH)
  10. ROSUVASTATIN [Concomitant]
     Active Substance: ROSUVASTATIN
     Dosage: 2.5 MG, 3X/WEEK (MONDAY, WEDNESDAY, FRIDAY)
     Dates: end: 20220711
  11. ROSUVASTATIN [Concomitant]
     Active Substance: ROSUVASTATIN
     Dosage: 2.5 MG, ONCE
     Dates: start: 20220714, end: 20220714
  12. LEVOTHYROXINE [Concomitant]
     Active Substance: LEVOTHYROXINE
     Dosage: 75 MG, 5X/WEEK (MONDAY - FRIDAY)
     Dates: end: 20220713
  13. TRULICITY [Concomitant]
     Active Substance: DULAGLUTIDE
     Dosage: 1.5 MG, 1X/WEEK (FRIDAY)
  14. VITAMIN D3 [Concomitant]
     Active Substance: CHOLECALCIFEROL
     Dosage: 50000 IU, 1X/WEEK (NORMALLY ON TUESDAY)
     Dates: end: 20220705
  15. VITAMIN D3 [Concomitant]
     Active Substance: CHOLECALCIFEROL
     Dosage: 50000 IU, ONCE (THURSDAY)
     Dates: start: 20220714, end: 20220714
  16. COENZYME Q10 [Concomitant]
     Active Substance: DIETARY SUPPLEMENT\UBIDECARENONE
     Dosage: 1 TABLETS, 3X/WEEK (MONDAY, WEDNESDAY, FRIDAY MORNINGS)
     Dates: end: 20220711
  17. GLUCOSAMINE HYDROCHLORIDE MSM (PURITAN^S PRIDE BLEND) [Concomitant]
     Dosage: 1500 MG, 2X/DAY (LUNCH AND DINNER)
     Route: 048
     Dates: end: 20220712
  18. FLONASE [Concomitant]
     Active Substance: FLUTICASONE PROPIONATE
     Dosage: 1 SPRAY PER NOSTRIL 2X/DAY (MORNING AND EVENING)
     Route: 045
     Dates: end: 20220713

REACTIONS (11)
  - Blood pressure increased [Recovered/Resolved]
  - Feeling abnormal [Recovered/Resolved]
  - Abdominal discomfort [Recovered/Resolved]
  - Retching [Recovered/Resolved]
  - Chest pain [Recovered/Resolved]
  - Electric shock sensation [Recovered/Resolved]
  - Vulvovaginal discomfort [Recovered/Resolved]
  - Drug ineffective [Recovered/Resolved]
  - Abdominal pain upper [Recovered/Resolved]
  - Vomiting [Recovered/Resolved]
  - Wrong technique in product usage process [Recovered/Resolved]

NARRATIVE: CASE EVENT DATE: 20220701
